FAERS Safety Report 4836339-5 (Version None)
Quarter: 2005Q4

REPORT INFORMATION
  Report Type: 
  Country: None (occurrence: None)
  Receive Date: 20051118
  Receipt Date: 20051108
  Transmission Date: 20060501
  Serious: Yes (Hospitalization, Other)
  Sender: FDA-Public Use
  Company Number: HQWYE863107MAR05

PATIENT
  Age: 54 Year
  Sex: Female

DRUGS (8)
  1. RAPAMUNE [Suspect]
     Indication: PROPHYLAXIS AGAINST TRANSPLANT REJECTION
     Dosage: 2 MG 1X PER 1 DAY; 3 MG 1X PER 1 DAY
     Route: 048
     Dates: start: 20041112, end: 20050202
  2. RAPAMUNE [Suspect]
     Indication: PROPHYLAXIS AGAINST TRANSPLANT REJECTION
     Dosage: 2 MG 1X PER 1 DAY; 3 MG 1X PER 1 DAY
     Route: 048
     Dates: start: 20050203
  3. PREDNISONE [Concomitant]
  4. ASPIRIN [Concomitant]
  5. NYSTATIN [Concomitant]
  6. SULFAMETHOXAZOLE + TRIMETHOPRIM [Concomitant]
  7. CYCLOSPORINE [Suspect]
     Dosage: 550 MG 1X PER 1 DAY
     Route: 048
     Dates: start: 20050222
  8. RANITIDINE [Concomitant]

REACTIONS (5)
  - DIABETES MELLITUS [None]
  - LEUKOCYTURIA [None]
  - LYMPHOCELE [None]
  - RENAL FAILURE ACUTE [None]
  - VARICELLA [None]
